FAERS Safety Report 5369860-4 (Version None)
Quarter: 2007Q2

REPORT INFORMATION
  Report Type: 
  Country: None (occurrence: None)
  Receive Date: 20070621
  Receipt Date: 20061113
  Transmission Date: 20071010
  Serious: Yes (Hospitalization)
  Sender: FDA-Public Use
  Company Number: 2006-08-0227

PATIENT
  Age: 68 Year
  Sex: Male
  Weight: 102 kg

DRUGS (11)
  1. EPTIFIBATIDE (S-P) (EPTIFIBATIDE) [Suspect]
     Indication: ACUTE CORONARY SYNDROME
     Dosage: IV
     Route: 042
     Dates: start: 20060712, end: 20060714
  2. HEPARIN [Suspect]
     Indication: DRUG USE FOR UNKNOWN INDICATION
  3. CLOPIDOGREL [Suspect]
     Indication: CORONARY ARTERY DISEASE
     Dosage: 75 MG; QD; PO
     Route: 048
     Dates: start: 20060712
  4. ACETYLSALICYLIC ACID (S-P) (ACETYLSALICYLIC ACID) [Suspect]
     Indication: CORONARY ARTERY DISEASE
     Dosage: 100 MG; QD; PO
     Route: 048
  5. METOPROLOL SUCCINATE [Concomitant]
  6. RAMIPRIL [Concomitant]
  7. ATORVASTATIN CALCIUM [Concomitant]
  8. TORSEMIDE [Concomitant]
  9. HYDROCHLOROTHIAZIDE [Concomitant]
  10. CANDESARTAN CILEXETIL [Concomitant]
  11. ESOMEPRAZOLE MAGNESIUM [Concomitant]

REACTIONS (6)
  - CATHETER SITE INFECTION [None]
  - FAT EMBOLISM [None]
  - HAEMODIALYSIS [None]
  - PERITONEAL DIALYSIS [None]
  - RENAL FAILURE ACUTE [None]
  - STAPHYLOCOCCAL INFECTION [None]
